FAERS Safety Report 5368886-4 (Version None)
Quarter: 2007Q2

REPORT INFORMATION
  Report Type: 
  Country: None (occurrence: None)
  Receive Date: 20070625
  Receipt Date: 20061027
  Transmission Date: 20071010
  Serious: No
  Sender: FDA-Public Use
  Company Number: US-ASTRAZENECA-2006UW20694

PATIENT
  Age: 61 Year
  Sex: Female
  Weight: 58.1 kg

DRUGS (3)
  1. CRESTOR [Suspect]
     Indication: BLOOD CHOLESTEROL INCREASED
     Route: 048
     Dates: start: 20060829
  2. WELLBUTRIN [Concomitant]
  3. VERAPAMIL [Concomitant]

REACTIONS (2)
  - ALOPECIA [None]
  - ARTHRALGIA [None]
